FAERS Safety Report 20188746 (Version 2)
Quarter: 2021Q4

REPORT INFORMATION
  Report Type: Spontaneous
  Country: IT (occurrence: None)
  Receive Date: 20211215
  Receipt Date: 20211231
  Transmission Date: 20220303
  Serious: Yes (Hospitalization)
  Sender: FDA-Public Use
  Company Number: 2021A856437

PATIENT
  Age: 65 Year
  Sex: Male

DRUGS (10)
  1. TICAGRELOR [Suspect]
     Active Substance: TICAGRELOR
     Route: 048
  2. ASPIRIN [Suspect]
     Active Substance: ASPIRIN
     Route: 065
  3. BISOPROLOL FUMARATE [Concomitant]
     Active Substance: BISOPROLOL FUMARATE
     Dosage: 5 MG TAKEN 1 CP MORNING AND 1 PC IN THE EVENING.
  4. BISOPROLOL FUMARATE [Concomitant]
     Active Substance: BISOPROLOL FUMARATE
  5. LASIX [Concomitant]
     Active Substance: FUROSEMIDE
     Dosage: 2.0DF UNKNOWN
  6. ATORVASTATIN [Concomitant]
     Active Substance: ATORVASTATIN
  7. ISOLYTE [Concomitant]
  8. LUVION [Concomitant]
  9. ENOXAPARIN [Concomitant]
     Active Substance: ENOXAPARIN
     Dosage: 4000 THOUSAND INTERNATIONAL UNITS
  10. EZETIMIBE [Concomitant]
     Active Substance: EZETIMIBE

REACTIONS (7)
  - Drug interaction [Unknown]
  - Gastrointestinal disorder [Unknown]
  - Pallor [Unknown]
  - Vomiting [Unknown]
  - Haematemesis [Unknown]
  - Abdominal pain upper [Unknown]
  - Asthenia [Unknown]

NARRATIVE: CASE EVENT DATE: 20211119
